FAERS Safety Report 6831688-3 (Version None)
Quarter: 2010Q3

REPORT INFORMATION
  Report Type: 
  Country: None (occurrence: None)
  Receive Date: 20100706
  Receipt Date: 20100623
  Transmission Date: 20110219
  Serious: Yes (Hospitalization)
  Sender: FDA-Public Use
  Company Number: 014305

PATIENT
  Age: 13 Year
  Sex: Male
  Weight: 56 kg

DRUGS (10)
  1. KEPPRA [Suspect]
     Indication: CONVULSION
     Dosage: (800 MG BID), (1 G BID INTRAVENOUS))
     Route: 042
     Dates: end: 20100601
  2. KEPPRA [Suspect]
     Indication: CONVULSION
     Dosage: (800 MG BID), (1 G BID INTRAVENOUS))
     Route: 042
     Dates: start: 20100615
  3. CLOBAZAM (FRISUM) [Suspect]
     Dosage: (5 MG BID), (10 MG BID)
     Dates: end: 20100601
  4. CLOBAZAM (FRISUM) [Suspect]
     Dosage: (5 MG BID), (10 MG BID)
     Dates: start: 20100615
  5. ARGININE [Concomitant]
  6. SODIUM BENZOATE [Concomitant]
  7. UNKNOWN [Concomitant]
  8. MOVICOL /01749801/ [Concomitant]
  9. MULTIVITAMIN /01229101/ [Concomitant]
  10. MIDAZOLAM HCL [Concomitant]

REACTIONS (9)
  - DEPRESSED LEVEL OF CONSCIOUSNESS [None]
  - EXTENSOR PLANTAR RESPONSE [None]
  - GRAND MAL CONVULSION [None]
  - HEAD INJURY [None]
  - HYPERAMMONAEMIA [None]
  - HYPERREFLEXIA [None]
  - MYDRIASIS [None]
  - STARING [None]
  - SUBDURAL HAEMORRHAGE [None]
